FAERS Safety Report 22279939 (Version 7)
Quarter: 2024Q3

REPORT INFORMATION
  Report Type: Report from Study
  Country: US (occurrence: US)
  Receive Date: 20230503
  Receipt Date: 20240705
  Transmission Date: 20241017
  Serious: Yes (Hospitalization, Other)
  Sender: BAXTER
  Company Number: US-BAXTER-2023BAX020182

PATIENT
  Age: 18 Year
  Sex: Female
  Weight: 151.1 kg

DRUGS (13)
  1. CYCLOPHOSPHAMIDE [Suspect]
     Active Substance: CYCLOPHOSPHAMIDE
     Indication: Acute lymphocytic leukaemia
     Dosage: 2500 MILLIGRAM, ONCE
     Route: 042
     Dates: start: 20230320
  2. CYCLOPHOSPHAMIDE [Suspect]
     Active Substance: CYCLOPHOSPHAMIDE
     Dosage: UNK, LAST DOSE PRIOR TO AE
     Route: 065
     Dates: start: 20230320
  3. METHOTREXATE [Suspect]
     Active Substance: METHOTREXATE
     Indication: Acute lymphocytic leukaemia
     Dosage: 15 MILLIGRAM, ONCE
     Route: 037
     Dates: start: 20230320
  4. METHOTREXATE [Suspect]
     Active Substance: METHOTREXATE
     Dosage: UNK, LAST DOSE PRIOR TO AE
     Route: 065
     Dates: start: 20230327
  5. THIOGUANINE [Suspect]
     Active Substance: THIOGUANINE
     Indication: Acute lymphocytic leukaemia
     Dosage: 140 MG
     Route: 048
     Dates: start: 20230320
  6. THIOGUANINE [Suspect]
     Active Substance: THIOGUANINE
     Dosage: UNK, LAST DOSE PRIOR TO AE
     Route: 065
     Dates: start: 20230402
  7. CYTARABINE [Suspect]
     Active Substance: CYTARABINE
     Indication: Acute lymphocytic leukaemia
     Dosage: 185 MILLIGRAM/SQ METER X 3
     Route: 042
     Dates: start: 20030320
  8. CYTARABINE [Suspect]
     Active Substance: CYTARABINE
     Dosage: UNK, LAST DOSE PRIOR TO AE
     Route: 065
     Dates: start: 20230323
  9. RUXOLITINIB [Suspect]
     Active Substance: RUXOLITINIB
     Indication: Acute lymphocytic leukaemia
     Dosage: 100 MILLIGRAM, BID, INCB018424
     Route: 048
     Dates: start: 20220908
  10. RUXOLITINIB [Suspect]
     Active Substance: RUXOLITINIB
     Dosage: 100 MILLIGRAM, BID, INCB018424
     Route: 048
     Dates: start: 20221212, end: 20221214
  11. RUXOLITINIB [Suspect]
     Active Substance: RUXOLITINIB
     Dosage: 100 MILLIGRAM, BID, INCB018424
     Route: 048
     Dates: start: 20230117, end: 20230120
  12. RUXOLITINIB [Suspect]
     Active Substance: RUXOLITINIB
     Dosage: 100 MILLIGRAM, BID, INCB018424
     Route: 048
     Dates: start: 20230216
  13. RUXOLITINIB [Suspect]
     Active Substance: RUXOLITINIB
     Dosage: UNK, LAST DOSE PRIOR TO AE
     Route: 065
     Dates: start: 20230402

REACTIONS (8)
  - Muscle strain [Not Recovered/Not Resolved]
  - Arthritis [Recovered/Resolved]
  - Hip fracture [Recovered/Resolved with Sequelae]
  - Skin disorder [Recovered/Resolved]
  - Skin bacterial infection [Recovered/Resolved]
  - Skin candida [Recovered/Resolved]
  - Arthritis bacterial [Recovered/Resolved]
  - Groin abscess [Recovered/Resolved]

NARRATIVE: CASE EVENT DATE: 20230327
